FAERS Safety Report 5565602-8 (Version None)
Quarter: 2007Q4

REPORT INFORMATION
  Report Type: 
  Country: None (occurrence: None)
  Receive Date: 20071218
  Receipt Date: 20070209
  Transmission Date: 20080405
  Serious: No
  Sender: FDA-Public Use
  Company Number: US-BOEHRINGER INGELHEIM PHARMACEUTICALS, INC.-2007-BP-00642BP

PATIENT
  Sex: Female

DRUGS (4)
  1. SPIRIVA [Suspect]
  2. THEO-DUR [Concomitant]
     Dates: start: 20020101
  3. ADVAIR DISKUS 100/50 [Concomitant]
     Dates: start: 20040101
  4. FOSAMAX [Concomitant]
     Dates: start: 20060101

REACTIONS (1)
  - EYE PAIN [None]
